FAERS Safety Report 8785273 (Version 1)
Quarter: 2012Q4

REPORT INFORMATION
  Report Type: 
  Country: FR (occurrence: FR)
  Receive Date: 20120914
  Receipt Date: 20120914
  Transmission Date: 20130627
  Serious: Yes (Hospitalization)
  Sender: FDA-Public Use
  Company Number: FR-ASTRAZENECA-2012SE70539

PATIENT
  Age: 79 Year
  Sex: Female

DRUGS (4)
  1. TENORMINE [Suspect]
     Route: 048
  2. OMEPRAZOLE [Suspect]
     Route: 048
  3. DEROXAT [Suspect]
     Dosage: UNKNOWN DOSE DAILY
     Route: 048
     Dates: start: 20120822, end: 20120828
  4. PRETERAX [Suspect]
     Dosage: 2 MG/0.625 MG DAILY
     Route: 048
     Dates: end: 20120828

REACTIONS (7)
  - Hyponatraemia [Recovered/Resolved]
  - Abnormal behaviour [Recovered/Resolved]
  - Decreased appetite [Unknown]
  - General physical health deterioration [Unknown]
  - Inappropriate affect [Unknown]
  - Atrioventricular block second degree [Unknown]
  - Blood creatinine increased [None]
